FAERS Safety Report 6341130-7 (Version None)
Quarter: 2009Q3

REPORT INFORMATION
  Report Type: 
  Country: None (occurrence: None)
  Receive Date: 20090904
  Receipt Date: 20090202
  Transmission Date: 20100115
  Serious: No
  Sender: FDA-Public Use
  Company Number: A0765506A

PATIENT
  Age: 70 Year
  Sex: Male

DRUGS (1)
  1. REQUIP [Suspect]
     Indication: DRUG USE FOR UNKNOWN INDICATION
     Route: 065

REACTIONS (2)
  - DIZZINESS [None]
  - NAUSEA [None]
